FAERS Safety Report 5851523-X (Version None)
Quarter: 2008Q3

REPORT INFORMATION
  Report Type: 
  Country: None (occurrence: None)
  Receive Date: 20080820
  Receipt Date: 20080806
  Transmission Date: 20090109
  Serious: No
  Sender: FDA-Public Use
  Company Number: GB-ELI_LILLY_AND_COMPANY-GB200801006674

PATIENT
  Sex: Male
  Weight: 90 kg

DRUGS (6)
  1. CYMBALTA [Suspect]
     Indication: DEPRESSION
     Dosage: 60 MG, DAILY (1/D)
     Route: 048
     Dates: start: 20050501, end: 20060522
  2. CYMBALTA [Suspect]
     Dosage: 120 MG, DAILY (1/D)
     Route: 048
     Dates: start: 20060523
  3. LAMOTRIGINE [Concomitant]
     Indication: DEPRESSION
     Dosage: 25 MG, UNKNOWN
     Route: 048
     Dates: start: 20050908, end: 20051213
  4. LAMOTRIGINE [Concomitant]
     Dosage: 100 MG, UNKNOWN
     Route: 048
     Dates: start: 20051214, end: 20060514
  5. LAMOTRIGINE [Concomitant]
     Dosage: 200 MG, UNKNOWN
     Route: 048
     Dates: start: 20060515, end: 20071115
  6. MODAFINIL [Concomitant]
     Indication: LETHARGY
     Dosage: 100 MG, AS NEEDED
     Route: 048
     Dates: start: 20070321

REACTIONS (1)
  - LIVER FUNCTION TEST ABNORMAL [None]
